FAERS Safety Report 7020198-9 (Version None)
Quarter: 2010Q3

REPORT INFORMATION
  Report Type: 
  Country: None (occurrence: None)
  Receive Date: 20100927
  Receipt Date: 20100914
  Transmission Date: 20110219
  Serious: Yes (Other)
  Sender: FDA-Public Use
  Company Number: 20100446

PATIENT
  Age: 59 Year
  Sex: Male

DRUGS (1)
  1. VENOFER [Suspect]
     Indication: RENAL FAILURE CHRONIC
     Dosage: 200 MG INTRAVENOUS BOLUS
     Route: 040
     Dates: start: 20100902, end: 20100902

REACTIONS (4)
  - ABDOMINAL DISCOMFORT [None]
  - HOT FLUSH [None]
  - HYPERHIDROSIS [None]
  - INCORRECT DRUG ADMINISTRATION RATE [None]
